FAERS Safety Report 11114735 (Version 2)
Quarter: 2015Q2

REPORT INFORMATION
  Report Type: Spontaneous
  Country: SN (occurrence: SN)
  Receive Date: 20150515
  Receipt Date: 20150521
  Transmission Date: 20150821
  Serious: Yes (Disabling)
  Sender: FDA-Public Use
  Company Number: SN-009507513-1505SEN006123

PATIENT
  Age: 50 Year
  Sex: Female
  Weight: 66 kg

DRUGS (3)
  1. JANUVIA [Suspect]
     Active Substance: SITAGLIPTIN PHOSPHATE
     Indication: TYPE 2 DIABETES MELLITUS
     Dosage: ONCE A DAY
     Route: 048
  2. AMAREL [Concomitant]
     Active Substance: GLIMEPIRIDE
     Indication: DIABETES MELLITUS
  3. METRONIDAZOLE. [Concomitant]
     Active Substance: METRONIDAZOLE
     Indication: PREOPERATIVE CARE
     Route: 048

REACTIONS (3)
  - Dyspnoea [Recovering/Resolving]
  - Pruritus generalised [Recovering/Resolving]
  - Peripheral swelling [Recovering/Resolving]
